FAERS Safety Report 6637765-4 (Version None)
Quarter: 2010Q1

REPORT INFORMATION
  Report Type: 
  Country: None (occurrence: None)
  Receive Date: 20100301
  Receipt Date: 20091110
  Transmission Date: 20100710
  Serious: Yes (Other)
  Sender: FDA-Public Use
  Company Number: 002404

PATIENT
  Sex: Female
  Weight: 63.6 kg

DRUGS (10)
  1. LACOSAMIDE [Suspect]
     Indication: CONVULSION
     Dosage: 50 MG BID ORAL; SEE IMAGE
     Route: 048
     Dates: start: 20090101, end: 20090101
  2. LACOSAMIDE [Suspect]
     Indication: CONVULSION
     Dosage: 50 MG BID ORAL; SEE IMAGE
     Route: 048
     Dates: start: 20090101
  3. KEPPRA [Suspect]
     Indication: CONVULSION
     Dosage: 3000 MG ORAL
     Route: 048
     Dates: start: 20070601
  4. SEROQUEL [Concomitant]
  5. CYMBALTA [Concomitant]
  6. KLONOPIN [Concomitant]
  7. XANAX [Concomitant]
  8. HYDROCODONE [Concomitant]
  9. AMITRIPTYLINE [Concomitant]
  10. FOSAMAX [Concomitant]

REACTIONS (3)
  - CONVULSION [None]
  - THORACIC VERTEBRAL FRACTURE [None]
  - UPPER LIMB FRACTURE [None]
